FAERS Safety Report 5286375-2 (Version None)
Quarter: 2007Q2

REPORT INFORMATION
  Report Type: 
  Country: None (occurrence: None)
  Receive Date: 20070404
  Receipt Date: 20070326
  Transmission Date: 20071010
  Serious: Yes (Hospitalization)
  Sender: FDA-Public Use
  Company Number: 2007CG00504

PATIENT
  Age: 68 Year
  Sex: Male

DRUGS (6)
  1. TENORMIN [Suspect]
     Route: 048
     Dates: start: 20031014, end: 20050731
  2. KARDEGIC [Concomitant]
     Route: 048
     Dates: start: 20031014
  3. PERINDOPRIL ERBUMINE [Concomitant]
     Route: 048
     Dates: start: 20031014
  4. ZOCOR [Concomitant]
     Route: 048
     Dates: start: 20031014
  5. PLAVIX [Concomitant]
     Route: 048
     Dates: start: 20031014
  6. AMLOR [Concomitant]
     Route: 048
     Dates: start: 20031014

REACTIONS (1)
  - INTERSTITIAL LUNG DISEASE [None]
